FAERS Safety Report 7655808-6 (Version None)
Quarter: 2011Q3

REPORT INFORMATION
  Report Type: 
  Country: None (occurrence: None)
  Receive Date: 20110729
  Receipt Date: 20110718
  Transmission Date: 20111222
  Serious: Yes (Disabling)
  Sender: FDA-Public Use
  Company Number: OSCN-NO-0901S-0030

PATIENT
  Age: 53 Year
  Sex: Male
  Weight: 85 kg

DRUGS (13)
  1. CICLOSPORIN (SANDIMMUN) (CICLOSPORIN) [Concomitant]
  2. ALLOPURINOL (APURIN) (ALLOPURINOL) [Concomitant]
  3. METOPROLOL SUCCINATE (SELO-ZOK) (METOPROLOL SUCCINATE) [Concomitant]
  4. EPOETIN ALFA (EPREX) (EPOETIN ALFA) [Concomitant]
  5. FLUVASTATIN (LESCOL) (FLUVASTATIN) [Concomitant]
  6. OMNISCAN [Suspect]
     Indication: PRODUCT USED FOR UNKNOWN INDICATION
     Dosage: 40 ML, SINGLE DOSE, INTRAVENOUS
     Route: 042
     Dates: start: 20051114, end: 20051114
  7. ISRADIPINE (LOMIR) (ISRADIPINE) [Concomitant]
  8. MAGNEVIST [Concomitant]
  9. PREDNISOLONE [Concomitant]
  10. CALCIUM ACETATE (PHOS-EX) (CALCIUM ACETATE) [Concomitant]
  11. FUROSEMIDE (DIURAL) (FUROSEMIDE) [Concomitant]
  12. SACCHARATED IRON OXIDE (VENOFER) (SACCHARATED IRON OXIDE) [Concomitant]
  13. ALFACALCIDOL (ETALPHA) (ALFACALCIDOL) [Concomitant]

REACTIONS (26)
  - PARAESTHESIA [None]
  - GASTROOESOPHAGEAL REFLUX DISEASE [None]
  - CARDIAC FAILURE [None]
  - TESTICULAR PAIN [None]
  - ARTHROPATHY [None]
  - SENSATION OF HEAVINESS [None]
  - DYSPEPSIA [None]
  - OEDEMA PERIPHERAL [None]
  - SKIN DISORDER [None]
  - LUNG INFILTRATION [None]
  - DISCOMFORT [None]
  - GAIT DISTURBANCE [None]
  - ARTHRALGIA [None]
  - TRANSPLANT FAILURE [None]
  - BACK PAIN [None]
  - ILIAC ARTERY STENOSIS [None]
  - DYSPNOEA [None]
  - BREAST MASS [None]
  - RASH [None]
  - JOINT SWELLING [None]
  - AORTIC VALVE INCOMPETENCE [None]
  - PRURITUS [None]
  - DYSPHAGIA [None]
  - SKIN TIGHTNESS [None]
  - OSTEOARTHRITIS [None]
  - NEPHROGENIC SYSTEMIC FIBROSIS [None]
